FAERS Safety Report 10535443 (Version 1)
Quarter: 2014Q4

REPORT INFORMATION
  Report Type: Spontaneous
  Country: US (occurrence: US)
  Receive Date: 20141022
  Receipt Date: 20141022
  Transmission Date: 20150529
  Serious: No
  Sender: FDA-Public Use
  Company Number: US-PFIZER INC-2014287766

PATIENT
  Age: 56 Year
  Sex: Male
  Weight: 134 kg

DRUGS (8)
  1. TESTOSTERONE CIPIONATE [Concomitant]
     Active Substance: TESTOSTERONE
     Dosage: 200 MG, ONCE EVERY FIVE DAYS
     Route: 030
  2. CARVEDILOL. [Concomitant]
     Active Substance: CARVEDILOL
     Indication: HYPERTENSION
     Dosage: 25 MG, UNK
  3. NANDROLONE DECANOATE. [Concomitant]
     Active Substance: NANDROLONE DECANOATE
     Dosage: 1000 MG, EVERY FIVE DAYS
     Route: 030
  4. AROMASIN [Suspect]
     Active Substance: EXEMESTANE
     Indication: LATE ONSET HYPOGONADISM SYNDROME
     Dosage: 12.5 MG, MONDAY, WEDNESDAY AND FRIDAY
  5. PREVACID [Concomitant]
     Active Substance: LANSOPRAZOLE
     Indication: DYSPEPSIA
     Dosage: UNK
  6. BENICAR [Concomitant]
     Active Substance: OLMESARTAN MEDOXOMIL
     Dosage: 40 MG, 2X/DAY
  7. AMILORIDE W/HYDROCHLOROTHIAZIDE [Concomitant]
     Active Substance: AMLODIPINE\HYDROCHLOROTHIAZIDE\OLMESARTAN
     Dosage: 5MG/50MG, 2X/DAY
  8. STANOZOLOL [Concomitant]
     Active Substance: STANOZOLOL
     Indication: BLOOD TESTOSTERONE FREE INCREASED
     Dosage: 25 MG, EVERY OTHER WEEK

REACTIONS (4)
  - Off label use [Unknown]
  - Oestradiol increased [Unknown]
  - Pre-existing condition improved [Unknown]
  - Therapeutic response unexpected [Unknown]
